FAERS Safety Report 4694023-5 (Version None)
Quarter: 2005Q2

REPORT INFORMATION
  Report Type: 
  Country: None (occurrence: None)
  Receive Date: 20050616
  Receipt Date: 20050606
  Transmission Date: 20051028
  Serious: Yes (Life-Threatening, Hospitalization)
  Sender: FDA-Public Use
  Company Number: 05FRA0130

PATIENT
  Age: 50 Year
  Sex: Male

DRUGS (1)
  1. AGGRASTAT [Suspect]
     Indication: ACUTE CORONARY SYNDROME
     Dosage: NR
     Dates: start: 20050501, end: 20050501

REACTIONS (1)
  - THROMBOCYTOPENIA [None]
